FAERS Safety Report 20636074 (Version 1)
Quarter: 2022Q1

REPORT INFORMATION
  Report Type: Spontaneous
  Country: US (occurrence: None)
  Receive Date: 20220324
  Receipt Date: 20220324
  Transmission Date: 20220423
  Serious: Yes (Disabling)
  Sender: FDA-Public Use
  Company Number: None

PATIENT
  Age: 64 Year
  Sex: Male
  Weight: 86.85 kg

DRUGS (1)
  1. LEXAPRO [Suspect]
     Active Substance: ESCITALOPRAM OXALATE
     Indication: Depression
     Dosage: OTHER QUANTITY : 1 TABLESPOON(S);?
     Route: 048
     Dates: start: 20081121, end: 20081221

REACTIONS (5)
  - Product substitution issue [None]
  - Aggression [None]
  - Suicidal ideation [None]
  - Condition aggravated [None]
  - Therapeutic response changed [None]

NARRATIVE: CASE EVENT DATE: 20081122
